FAERS Safety Report 24171084 (Version 1)
Quarter: 2024Q3

REPORT INFORMATION
  Report Type: Report from Study
  Country: US (occurrence: US)
  Receive Date: 20240805
  Receipt Date: 20240805
  Transmission Date: 20241016
  Serious: Yes (Life-Threatening)
  Sender: JOHNSON AND JOHNSON
  Company Number: US-JNJFOC-20240780322

PATIENT
  Age: 63 Year
  Sex: Female
  Weight: 54.2 kg

DRUGS (72)
  1. DARATUMUMAB [Suspect]
     Active Substance: DARATUMUMAB
     Indication: Plasma cell myeloma
     Route: 058
     Dates: start: 20230707, end: 20230810
  2. ELRANATAMAB [Suspect]
     Active Substance: ELRANATAMAB
     Indication: Plasma cell myeloma
     Route: 058
     Dates: start: 20230615
  3. ELRANATAMAB [Suspect]
     Active Substance: ELRANATAMAB
     Route: 058
     Dates: start: 20230619
  4. ELRANATAMAB [Suspect]
     Active Substance: ELRANATAMAB
     Route: 058
     Dates: start: 20230625, end: 20231122
  5. ELRANATAMAB [Suspect]
     Active Substance: ELRANATAMAB
     Route: 058
     Dates: start: 20231129, end: 20231213
  6. CEFTAZIDIME [Concomitant]
     Active Substance: CEFTAZIDIME
     Indication: Pneumonia
     Route: 042
     Dates: start: 20240223, end: 20240313
  7. TEICOPLANIN [Concomitant]
     Active Substance: TEICOPLANIN
     Indication: Pneumonia
     Route: 041
     Dates: start: 20231227, end: 20231229
  8. TEICOPLANIN [Concomitant]
     Active Substance: TEICOPLANIN
     Route: 041
     Dates: start: 20240101, end: 20240103
  9. TEICOPLANIN [Concomitant]
     Active Substance: TEICOPLANIN
     Route: 041
     Dates: start: 20240223, end: 20240313
  10. TEICOPLANIN [Concomitant]
     Active Substance: TEICOPLANIN
     Dates: start: 20240313, end: 20240324
  11. OXICONAZOLE [Concomitant]
     Active Substance: OXICONAZOLE
     Indication: Pneumonia
     Route: 041
     Dates: start: 20240223, end: 20240306
  12. AMPHOTERICIN B [Concomitant]
     Active Substance: AMPHOTERICIN B
     Indication: Pneumonia
     Route: 041
     Dates: start: 20240305
  13. AMPHOTERICIN B [Concomitant]
     Active Substance: AMPHOTERICIN B
     Route: 041
     Dates: start: 20240306
  14. AMPHOTERICIN B [Concomitant]
     Active Substance: AMPHOTERICIN B
     Route: 041
     Dates: start: 20240307
  15. AMPHOTERICIN B [Concomitant]
     Active Substance: AMPHOTERICIN B
     Route: 041
     Dates: start: 20240308, end: 20240313
  16. AMBROXOL HYDROCHLORIDE [Concomitant]
     Active Substance: AMBROXOL HYDROCHLORIDE
     Indication: Pneumonia
     Route: 041
     Dates: start: 20240306, end: 20240312
  17. AMBROXOL HYDROCHLORIDE [Concomitant]
     Active Substance: AMBROXOL HYDROCHLORIDE
     Route: 041
     Dates: start: 20240306, end: 20240313
  18. AMBROXOL HYDROCHLORIDE [Concomitant]
     Active Substance: AMBROXOL HYDROCHLORIDE
     Route: 041
     Dates: start: 20240105, end: 20240111
  19. AMBROXOL HYDROCHLORIDE [Concomitant]
     Active Substance: AMBROXOL HYDROCHLORIDE
     Route: 041
     Dates: start: 20240210, end: 20240219
  20. AMBROXOL HYDROCHLORIDE [Concomitant]
     Active Substance: AMBROXOL HYDROCHLORIDE
     Dates: start: 20240313, end: 20240314
  21. AMBROXOL HYDROCHLORIDE [Concomitant]
     Active Substance: AMBROXOL HYDROCHLORIDE
     Route: 041
     Dates: start: 20240314
  22. BUDESONIDE [Concomitant]
     Active Substance: BUDESONIDE
     Indication: Pneumonia
     Route: 065
     Dates: start: 20240306, end: 20240313
  23. BUDESONIDE [Concomitant]
     Active Substance: BUDESONIDE
     Dates: start: 20240221, end: 20240306
  24. BUDESONIDE [Concomitant]
     Active Substance: BUDESONIDE
     Route: 065
     Dates: start: 20240313, end: 20240324
  25. CHYMOTRYPSIN [Concomitant]
     Active Substance: CHYMOTRYPSIN
     Indication: Pneumonia
     Dosage: 4000U
     Route: 065
     Dates: start: 20240306, end: 20240313
  26. CHYMOTRYPSIN [Concomitant]
     Active Substance: CHYMOTRYPSIN
     Dates: start: 20240220, end: 20240221
  27. CHYMOTRYPSIN [Concomitant]
     Active Substance: CHYMOTRYPSIN
     Dosage: 4000 U
     Dates: start: 20240221, end: 20240306
  28. CHYMOTRYPSIN [Concomitant]
     Active Substance: CHYMOTRYPSIN
     Dosage: 4000
     Route: 065
     Dates: start: 20240221, end: 20240306
  29. GANCICLOVIR [Concomitant]
     Active Substance: GANCICLOVIR
     Indication: Pneumonia
     Route: 041
     Dates: start: 20231214, end: 20231220
  30. GANCICLOVIR [Concomitant]
     Active Substance: GANCICLOVIR
     Route: 041
     Dates: start: 20231221, end: 20240102
  31. GANCICLOVIR [Concomitant]
     Active Substance: GANCICLOVIR
     Route: 041
     Dates: start: 20240131, end: 20240212
  32. GANCICLOVIR [Concomitant]
     Active Substance: GANCICLOVIR
     Route: 041
     Dates: start: 20240218, end: 20240219
  33. GANCICLOVIR [Concomitant]
     Active Substance: GANCICLOVIR
     Route: 041
     Dates: start: 20240220, end: 20240223
  34. VALGANCICLOVIR [Concomitant]
     Active Substance: VALGANCICLOVIR
     Route: 048
     Dates: start: 20240103, end: 20240130
  35. VALGANCICLOVIR [Concomitant]
     Active Substance: VALGANCICLOVIR
     Route: 048
     Dates: start: 20240103
  36. LINEZOLID [Concomitant]
     Active Substance: LINEZOLID
     Route: 041
     Dates: start: 20240103, end: 20240112
  37. LINEZOLID [Concomitant]
     Active Substance: LINEZOLID
     Route: 041
     Dates: start: 20240111, end: 20240118
  38. LINEZOLID [Concomitant]
     Active Substance: LINEZOLID
     Route: 041
     Dates: start: 20240220, end: 20240223
  39. TIGECYCLINE [Concomitant]
     Active Substance: TIGECYCLINE
     Route: 041
     Dates: start: 20240103, end: 20240105
  40. TIGECYCLINE [Concomitant]
     Active Substance: TIGECYCLINE
     Route: 041
     Dates: start: 20240106, end: 20240111
  41. TIGECYCLINE [Concomitant]
     Active Substance: TIGECYCLINE
     Route: 041
     Dates: start: 20240111, end: 20240118
  42. TIGECYCLINE [Concomitant]
     Active Substance: TIGECYCLINE
     Route: 041
     Dates: start: 20240206
  43. TIGECYCLINE [Concomitant]
     Active Substance: TIGECYCLINE
     Route: 041
     Dates: start: 20240206, end: 20240220
  44. TIGECYCLINE [Concomitant]
     Active Substance: TIGECYCLINE
     Route: 041
     Dates: start: 20240220, end: 20240223
  45. METRONIDAZOLE [Concomitant]
     Active Substance: METRONIDAZOLE
     Dates: start: 20240111, end: 20240118
  46. METRONIDAZOLE [Concomitant]
     Active Substance: METRONIDAZOLE
     Route: 041
     Dates: start: 20240202, end: 20240219
  47. MEROPENEM [Concomitant]
     Active Substance: MEROPENEM
     Route: 041
     Dates: start: 20240131
  48. MEROPENEM [Concomitant]
     Active Substance: MEROPENEM
     Route: 041
     Dates: start: 20240201, end: 20240202
  49. NYSTATIN [Concomitant]
     Active Substance: NYSTATIN
     Dates: start: 20240202, end: 20240219
  50. VORICONAZOLE [Concomitant]
     Active Substance: VORICONAZOLE
     Route: 041
     Dates: start: 20240202
  51. VORICONAZOLE [Concomitant]
     Active Substance: VORICONAZOLE
     Route: 041
     Dates: start: 20240203, end: 20240220
  52. ACETYLCYSTEINE [Concomitant]
     Active Substance: ACETYLCYSTEINE
     Dates: start: 20240204, end: 20240214
  53. ACETYLCYSTEINE [Concomitant]
     Active Substance: ACETYLCYSTEINE
     Dates: start: 20240320
  54. CEFOPERAZONE SODIUM [Concomitant]
     Active Substance: CEFOPERAZONE SODIUM
     Route: 041
     Dates: start: 20240206, end: 20240211
  55. POLYMYXIN B [Concomitant]
     Active Substance: POLYMYXIN B
     Dosage: 780000
     Dates: start: 20240212, end: 20240220
  56. IBUPROFEN [Concomitant]
     Active Substance: IBUPROFEN
     Dates: start: 20240210, end: 20240211
  57. IBUPROFEN [Concomitant]
     Active Substance: IBUPROFEN
     Route: 065
     Dates: start: 20240213
  58. CASPOFUNGIN [Concomitant]
     Active Substance: CASPOFUNGIN
     Dates: start: 20240220
  59. CASPOFUNGIN [Concomitant]
     Active Substance: CASPOFUNGIN
     Route: 041
     Dates: start: 20240221, end: 20240223
  60. CIPROFLOXACIN [Concomitant]
     Active Substance: CIPROFLOXACIN
     Route: 041
     Dates: start: 20240223, end: 20240313
  61. IMIPENEM [Concomitant]
     Active Substance: IMIPENEM
     Route: 041
     Dates: start: 20240313
  62. IMIPENEM [Concomitant]
     Active Substance: IMIPENEM
     Route: 041
     Dates: start: 20240314
  63. METHYLPREDNISOLONE [Concomitant]
     Active Substance: METHYLPREDNISOLONE
     Route: 041
     Dates: start: 20240314, end: 20240318
  64. METHYLPREDNISOLONE [Concomitant]
     Active Substance: METHYLPREDNISOLONE
     Route: 041
     Dates: start: 20240319
  65. METHYLPREDNISOLONE [Concomitant]
     Active Substance: METHYLPREDNISOLONE
     Route: 041
     Dates: start: 20240320
  66. METHYLPREDNISOLONE [Concomitant]
     Active Substance: METHYLPREDNISOLONE
     Route: 041
     Dates: start: 20240322, end: 20240328
  67. MOXALACTAM [Concomitant]
     Active Substance: MOXALACTAM
     Dates: start: 20240320, end: 20240328
  68. METHOXYPHENAMINE HYDROCHLORIDE [Concomitant]
     Active Substance: METHOXYPHENAMINE HYDROCHLORIDE
     Route: 003
     Dates: start: 20240327
  69. SITAFLOXACIN [Concomitant]
     Active Substance: SITAFLOXACIN
     Dates: start: 20240328
  70. CEFUROXIME AXETIL [Concomitant]
     Active Substance: CEFUROXIME AXETIL
     Dates: start: 20240328
  71. OXYGEN [Concomitant]
     Active Substance: OXYGEN
     Dates: start: 20240313, end: 20240321
  72. OXYGEN [Concomitant]
     Active Substance: OXYGEN
     Dates: start: 20240322

REACTIONS (2)
  - Blood fibrinogen decreased [Recovered/Resolved]
  - Platelet count decreased [Recovered/Resolved]

NARRATIVE: CASE EVENT DATE: 20240223
